FAERS Safety Report 6051234-4 (Version None)
Quarter: 2009Q1

REPORT INFORMATION
  Report Type: 
  Country: None (occurrence: None)
  Receive Date: 20090121
  Receipt Date: 20090105
  Transmission Date: 20090719
  Serious: Yes (Disabling)
  Sender: FDA-Public Use
  Company Number: 2009000029

PATIENT
  Age: 67 Year
  Sex: Male

DRUGS (5)
  1. TARCEVA [Suspect]
     Indication: NON-SMALL CELL LUNG CANCER
     Dosage: (100 MG, QD), ORAL
     Route: 048
     Dates: start: 20070501
  2. ZOPICLONE [Concomitant]
  3. LOFERPRAMINE [Concomitant]
  4. DIAZEPAM [Concomitant]
  5. LANSOPRAZOLE [Concomitant]

REACTIONS (8)
  - ABDOMINAL DISCOMFORT [None]
  - CONDITION AGGRAVATED [None]
  - CORNEAL PERFORATION [None]
  - DEPRESSION [None]
  - DYSPEPSIA [None]
  - FUNGAL INFECTION [None]
  - HYPOKINESIA [None]
  - MALIGNANT NEOPLASM PROGRESSION [None]
